FAERS Safety Report 24142061 (Version 1)
Quarter: 2024Q3

REPORT INFORMATION
  Report Type: Spontaneous
  Country: US (occurrence: US)
  Receive Date: 20240726
  Receipt Date: 20240726
  Transmission Date: 20241016
  Serious: Yes (Other)
  Sender: PFIZER
  Company Number: US-PFIZER INC-202400223178

PATIENT
  Age: 74 Year
  Sex: Female

DRUGS (1)
  1. INDOMETHACIN [Suspect]
     Active Substance: INDOMETHACIN
     Indication: Gout
     Dosage: UNK

REACTIONS (3)
  - Renal failure [Unknown]
  - Drug hypersensitivity [Unknown]
  - Off label use [Unknown]
